FAERS Safety Report 22537378 (Version 9)
Quarter: 2024Q1

REPORT INFORMATION
  Report Type: Report from Study
  Country: RU (occurrence: RU)
  Receive Date: 20230608
  Receipt Date: 20240222
  Transmission Date: 20240410
  Serious: Yes (Other)
  Sender: FDA-Public Use
  Company Number: RU-002147023-NVSC2023RU127121

PATIENT
  Age: 1 Year
  Sex: Female
  Weight: 11 kg

DRUGS (8)
  1. ZOLGENSMA [Suspect]
     Active Substance: ONASEMNOGENE ABEPARVOVEC-XIOI
     Indication: Spinal muscular atrophy
     Dosage: 52.3 ML, ONCE/SINGLE
     Route: 041
     Dates: start: 20230220, end: 20230220
  2. CHOLECALCIFEROL [Concomitant]
     Active Substance: CHOLECALCIFEROL
     Indication: Product used for unknown indication
     Dosage: 1500 IU, QD (IN THE MORNING)
     Route: 048
     Dates: start: 20230210
  3. SODIUM CHLORIDE [Concomitant]
     Active Substance: SODIUM CHLORIDE
     Indication: Product used for unknown indication
     Dosage: NASAL IRRIGATION 3?4 TIMES A DAY, THEN ELECTROASPIRATION OF MUCUS
     Route: 045
     Dates: start: 20230213
  4. OXYMETAZOLINE [Concomitant]
     Active Substance: OXYMETAZOLINE
     Indication: Product used for unknown indication
     Dosage: 1?2 DROPS PER NOSTRIL, TID
     Route: 045
     Dates: start: 20230213
  5. ALUMINUM PHOSPHATE [Concomitant]
     Active Substance: ALUMINUM PHOSPHATE
     Indication: Product used for unknown indication
     Dosage: 1/2 SACHET 3 TIMES A DAY EVERY DAY, ONE HOUR AFTER MEALS, TID
     Route: 048
     Dates: start: 20230219
  6. VITAMIN D [Concomitant]
     Active Substance: VITAMIN D NOS
     Indication: Product used for unknown indication
     Dosage: 4 DRP, IN THE MORNING
     Route: 065
     Dates: start: 202302
  7. NEXIUM [Concomitant]
     Active Substance: ESOMEPRAZOLE MAGNESIUM
     Indication: Product used for unknown indication
     Dosage: 5 MG (1/2 SACHET) ONCE DAILY, EVERY DAY BEFORE BEDTIME
     Route: 048
     Dates: start: 202302
  8. ALUMINUM PHOSPHATE [Concomitant]
     Active Substance: ALUMINUM PHOSPHATE
     Indication: Product used for unknown indication
     Dosage: 1/2 SACHET 3 TIMES A DAY EVERY DAY, ONE HOUR AFTER MEALS
     Route: 048
     Dates: start: 20230219

REACTIONS (23)
  - Azotaemia [Recovering/Resolving]
  - Leukopenia [Recovering/Resolving]
  - Lymphopenia [Recovering/Resolving]
  - Thrombocytopenia [Recovering/Resolving]
  - Cough [Not Recovered/Not Resolved]
  - Diarrhoea [Not Recovered/Not Resolved]
  - Rhinorrhoea [Not Recovered/Not Resolved]
  - Pyrexia [Not Recovered/Not Resolved]
  - Monocytosis [Recovered/Resolved]
  - Blood bilirubin decreased [Recovering/Resolving]
  - Urine output decreased [Recovering/Resolving]
  - Blood lactate dehydrogenase increased [Recovered/Resolved]
  - Activated partial thromboplastin time shortened [Recovering/Resolving]
  - Blood uric acid increased [Recovered/Resolved]
  - Regurgitation [Recovering/Resolving]
  - Red blood cell count increased [Recovering/Resolving]
  - Blood creatinine decreased [Recovering/Resolving]
  - Decreased appetite [Recovering/Resolving]
  - Alanine aminotransferase increased [Recovering/Resolving]
  - Aspartate aminotransferase increased [Unknown]
  - Fatigue [Recovering/Resolving]
  - Pyrexia [Recovered/Resolved]
  - Concomitant disease progression [Not Recovered/Not Resolved]

NARRATIVE: CASE EVENT DATE: 20230607
